FAERS Safety Report 4562896-2 (Version None)
Quarter: 2005Q1

REPORT INFORMATION
  Report Type: 
  Country: None (occurrence: None)
  Receive Date: 20050127
  Receipt Date: 20050117
  Transmission Date: 20050727
  Serious: Yes (Hospitalization, Disabling, Congenital Anomaly)
  Sender: FDA-Public Use
  Company Number: CH-BRISTOL-MYERS SQUIBB COMPANY-12837779

PATIENT
  Sex: Male
  Weight: 2640 kg

DRUGS (8)
  1. ENDOXAN [Suspect]
     Route: 040
     Dates: start: 20040108, end: 20040108
  2. DEPAKENE [Suspect]
     Dosage: 300 MG A.M./500 MG P.M. DAILY
     Route: 048
     Dates: start: 20040107, end: 20040914
  3. SANDIMMUNE [Concomitant]
     Dates: start: 20040310, end: 20040914
  4. PREDNISONE [Concomitant]
     Dates: start: 20040107, end: 20040914
  5. OMEPRAZOLE [Concomitant]
     Dates: start: 20040107, end: 20040914
  6. SERETIDE [Concomitant]
     Route: 055
     Dates: start: 20040107, end: 20040914
  7. XANAX [Concomitant]
     Dates: start: 20030901, end: 20040914
  8. TAVANIC [Concomitant]
     Dates: start: 20040202, end: 20040204

REACTIONS (4)
  - CONGENITAL FOOT MALFORMATION [None]
  - FOETAL GROWTH RETARDATION [None]
  - HYPOGLYCAEMIA [None]
  - RESPIRATORY DISTRESS [None]
